FAERS Safety Report 9772940 (Version 1)
Quarter: 2013Q4

REPORT INFORMATION
  Report Type: Spontaneous
  Country: US (occurrence: None)
  Receive Date: 20131218
  Receipt Date: 20131218
  Transmission Date: 20140711
  Serious: Yes (Hospitalization)
  Sender: FDA-Public Use
  Company Number: None

PATIENT
  Age: 66 Year
  Sex: Male
  Weight: 143.3 kg

DRUGS (2)
  1. HYDROCHLOROTHIAZIDE/LOSARTAN [Suspect]
     Indication: HYPERTENSION
     Dosage: 1 TAB, EVERYDAY
     Route: 048
     Dates: start: 20130711, end: 20131120
  2. SEVOFLURANE [Suspect]
     Indication: ANAESTHESIA
     Dosage: INHALE
     Dates: start: 20131120, end: 20131120

REACTIONS (2)
  - Hypotension [None]
  - Anaesthetic complication [None]
